FAERS Safety Report 4326117-8 (Version None)
Quarter: 2004Q1

REPORT INFORMATION
  Report Type: 
  Country: None (occurrence: None)
  Receive Date: 20040324
  Receipt Date: 20040312
  Transmission Date: 20041129
  Serious: Yes (Death, Life-Threatening)
  Sender: FDA-Public Use
  Company Number: BE-JNJFOC-20040303016

PATIENT
  Age: 27 Year
  Sex: Female
  Weight: 53.4 kg

DRUGS (4)
  1. REMICADE [Suspect]
     Indication: CROHN'S DISEASE
     Dosage: 260 MG, INTRAVENOUS
     Route: 042
     Dates: start: 20031219
  2. BUDESONIDE (BUDESONIDE) [Concomitant]
  3. BACLOFEN [Concomitant]
  4. AMITRIPTYLINE HCL [Concomitant]

REACTIONS (1)
  - COMPLETED SUICIDE [None]
